FAERS Safety Report 5762128-3 (Version None)
Quarter: 2008Q2

REPORT INFORMATION
  Report Type: 
  Country: None (occurrence: None)
  Receive Date: 20080604
  Receipt Date: 20080521
  Transmission Date: 20081010
  Serious: Yes (Life-Threatening)
  Sender: FDA-Public Use
  Company Number: 2008EU000957

PATIENT
  Age: 50 Year
  Sex: Male
  Weight: 82 kg

DRUGS (4)
  1. PROGRAF [Suspect]
     Indication: RENAL TRANSPLANT
     Dosage: 11 MG, UID/QD, ORAL
     Route: 048
     Dates: start: 20080122
  2. CELLCEPT [Concomitant]
  3. APREDNISLON (PREDNISOLONE) [Concomitant]
  4. NORVASC [Concomitant]

REACTIONS (1)
  - PULMONARY EMBOLISM [None]
